FAERS Safety Report 19840668 (Version 1)
Quarter: 2021Q3

REPORT INFORMATION
  Report Type: Spontaneous
  Country: DE (occurrence: DE)
  Receive Date: 20210916
  Receipt Date: 20210916
  Transmission Date: 20211014
  Serious: Yes (Hospitalization)
  Sender: FDA-Public Use
  Company Number: DE-TEVA-2021-DE-1951531

PATIENT
  Age: 84 Year
  Sex: Male
  Weight: 75.5 kg

DRUGS (14)
  1. ACETYLSALICYLSAURE [Concomitant]
     Active Substance: ASPIRIN
     Dosage: 100 MILLIGRAM DAILY; 0?1?0?0
     Route: 048
  2. CINEOL [Concomitant]
     Dosage: 600 MILLIGRAM DAILY; 200 MG, 1?1?1?0:SUSTAINED?RELEASE CAPSULES
     Route: 048
  3. KALIUMIODID [Concomitant]
     Active Substance: POTASSIUM IODIDE
     Dosage: .1 MILLIGRAM DAILY; 0?1?0?0
     Route: 048
  4. APIXABAN [Concomitant]
     Active Substance: APIXABAN
     Dosage: 5 MILLIGRAM DAILY; 1?0?1?0
     Route: 048
  5. AMITRIPTYLIN [Concomitant]
     Active Substance: AMITRIPTYLINE
     Dosage: .5 DOSAGE FORMS DAILY; 100 MG, 0?0?0?0.5, SUSTAINED?RELEASE TABLETS
     Route: 048
  6. SIMVASTATIN. [Concomitant]
     Active Substance: SIMVASTATIN
     Dosage: 40 MILLIGRAM DAILY; 0?0?1?0
     Route: 048
  7. AMITRIPTYLIN [Concomitant]
     Active Substance: AMITRIPTYLINE
     Dosage: 10 MILLIGRAM DAILY; 1?0?0?0
     Route: 048
  8. RAMIPRIL. [Concomitant]
     Active Substance: RAMIPRIL
     Dosage: 2.5 MILLIGRAM DAILY; 1?0?0?0
     Route: 048
  9. ATENOLOL. [Concomitant]
     Active Substance: ATENOLOL
     Dosage: 1 DOSAGE FORMS DAILY; 50 MG, 0.5?0?0.5?0
     Route: 048
  10. ALLOPURINOL. [Concomitant]
     Active Substance: ALLOPURINOL
     Dosage: .5 DOSAGE FORMS DAILY; 300 MG, 0?0.5?0?0
     Route: 048
  11. IPRATROPIUMBROMID/SALBUTAMOL [Concomitant]
     Active Substance: ALBUTEROL\IPRATROPIUM BROMIDE
     Dosage: 4 DOSAGE FORMS DAILY; 0.5 | 2.5 MG, 1?1?1?1, SOLUTION FOR NEBULIZER
     Route: 055
  12. DEXAMETHASON [Suspect]
     Active Substance: DEXAMETHASONE
     Dosage: 40 MG, ACCORDING TO THE SCHEME, AMPOULES
     Route: 051
  13. LENALIDOMID [Suspect]
     Active Substance: LENALIDOMIDE
     Dosage: 25 MG, PAUSED
     Route: 048
  14. TAMSULOSIN [Concomitant]
     Active Substance: TAMSULOSIN
     Dosage: .4 MILLIGRAM DAILY; 0.4 MG, 1?0?0?0, SUSTAINED?RELEASE CAPSULES
     Route: 048

REACTIONS (1)
  - Bursitis [Unknown]

NARRATIVE: CASE EVENT DATE: 20210101
